FAERS Safety Report 5625535-5 (Version None)
Quarter: 2008Q1

REPORT INFORMATION
  Report Type: 
  Country: None (occurrence: None)
  Receive Date: 20080211
  Receipt Date: 20080211
  Transmission Date: 20080703
  Serious: Yes (Hospitalization)
  Sender: FDA-Public Use
  Company Number: None

PATIENT
  Sex: Male
  Weight: 78.2 kg

DRUGS (5)
  1. TEMOZOLOMIDE [Suspect]
     Dosage: 5940 MG
  2. DECADRON [Concomitant]
  3. NADOLOL [Concomitant]
  4. NEBUPENT [Concomitant]
  5. PEPCID [Concomitant]

REACTIONS (3)
  - CONVULSION [None]
  - HYPONATRAEMIA [None]
  - MENTAL STATUS CHANGES [None]
